FAERS Safety Report 5676198-4 (Version None)
Quarter: 2008Q1

REPORT INFORMATION
  Report Type: 
  Country: None (occurrence: None)
  Receive Date: 20080321
  Receipt Date: 20080311
  Transmission Date: 20080703
  Serious: Yes (Other)
  Sender: FDA-Public Use
  Company Number: US-PFIZER INC-2008023709

PATIENT
  Age: 11 Year
  Sex: Female
  Weight: 43.636 kg

DRUGS (3)
  1. LYRICA [Suspect]
     Indication: EPILEPSY
  2. LYRICA [Suspect]
     Indication: PARTIAL SEIZURES
  3. LYRICA [Suspect]
     Indication: GRAND MAL CONVULSION

REACTIONS (4)
  - CONVULSION [None]
  - GRAND MAL CONVULSION [None]
  - RASH [None]
  - SKIN LESION [None]
